FAERS Safety Report 8325682-3 (Version None)
Quarter: 2012Q2

REPORT INFORMATION
  Report Type: 
  Country: None (occurrence: None)
  Receive Date: 20120501
  Receipt Date: 20120501
  Transmission Date: 20120825
  Serious: Yes (Other)
  Sender: FDA-Public Use
  Company Number: None

PATIENT
  Age: 33 Year
  Sex: Male
  Weight: 83.914 kg

DRUGS (1)
  1. LEVAQUIN [Suspect]

REACTIONS (7)
  - CONFUSIONAL STATE [None]
  - DEPRESSION [None]
  - PARANOIA [None]
  - GASTROOESOPHAGEAL REFLUX DISEASE [None]
  - PARAESTHESIA [None]
  - SELF-INJURIOUS IDEATION [None]
  - PAIN IN EXTREMITY [None]
